FAERS Safety Report 4615324-2 (Version None)
Quarter: 2005Q1

REPORT INFORMATION
  Report Type: 
  Country: None (occurrence: None)
  Receive Date: 20050322
  Receipt Date: 20040823
  Transmission Date: 20050727
  Serious: Yes (Other)
  Sender: FDA-Public Use
  Company Number: PHEH2004US09177

PATIENT
  Age: 79 Year
  Sex: Male

DRUGS (8)
  1. ZOMETA [Suspect]
     Indication: PROSTATE CANCER METASTATIC
     Dosage: UNKNOWN
  2. CHROMAGEN [Concomitant]
  3. DEXAMETHASONE TABLETS USP (NGX) [Concomitant]
  4. CEPHALEXIN [Concomitant]
  5. NEUROTON [Concomitant]
  6. TRIAMTERENE [Concomitant]
  7. PROPOXYPHENE HCL CAPSULES USP (NGX) [Concomitant]
  8. ANAESTHETICS, LOCAL [Concomitant]
     Dates: start: 20040501, end: 20040501

REACTIONS (12)
  - BONE DEBRIDEMENT [None]
  - BONE DISORDER [None]
  - IMPAIRED HEALING [None]
  - JAW FRACTURE [None]
  - LOCAL ANAESTHESIA [None]
  - METASTASES TO BONE [None]
  - NERVE INJURY [None]
  - OSTEOMYELITIS [None]
  - OSTEONECROSIS [None]
  - PARAESTHESIA ORAL [None]
  - PATHOLOGICAL FRACTURE [None]
  - TOOTH EXTRACTION [None]
